FAERS Safety Report 4793454-2 (Version None)
Quarter: 2005Q4

REPORT INFORMATION
  Report Type: 
  Country: None (occurrence: None)
  Receive Date: 20051011
  Receipt Date: 20050309
  Transmission Date: 20060501
  Serious: No
  Sender: FDA-Public Use
  Company Number: US-BRISTOL-MYERS SQUIBB COMPANY-12891677

PATIENT
  Age: 39 Year
  Sex: Female
  Weight: 82 kg

DRUGS (6)
  1. METFORMIN HCL XR TABS 500 MG [Suspect]
     Indication: GLUCOSE TOLERANCE IMPAIRED
     Dosage: INITIAL DOSE WAS 2 TABS PER DAY, INCREASED TO 4 TABS PER DAY WITHIN THE LAST COUPLE OF MONTHS
  2. LEVSIN [Concomitant]
     Dosage: 1 DOSAGE FORM = 0.125 MG
     Route: 060
  3. LORAZEPAM [Concomitant]
  4. NEXIUM [Concomitant]
  5. LEVOTHYROXINE [Concomitant]
  6. TRAZODONE HCL [Concomitant]

REACTIONS (3)
  - ALOPECIA [None]
  - FEELING HOT [None]
  - PRURITUS [None]
